FAERS Safety Report 7337616-9 (Version None)
Quarter: 2011Q1

REPORT INFORMATION
  Report Type: 
  Country: None (occurrence: None)
  Receive Date: 20110308
  Receipt Date: 20110225
  Transmission Date: 20110831
  Serious: Yes (Other)
  Sender: FDA-Public Use
  Company Number: FR-PFIZER INC-2009313611

PATIENT
  Sex: Male
  Weight: 72.7 kg

DRUGS (8)
  1. XANAX [Suspect]
     Indication: DEPRESSION
     Dosage: UNK
     Route: 048
     Dates: start: 19960101, end: 20090101
  2. ZOXON [Concomitant]
     Indication: PROSTATIC DISORDER
     Dosage: UNK
  3. DICETEL [Concomitant]
     Dosage: UNK
  4. HAVLANE [Suspect]
     Indication: INSOMNIA
     Dosage: UNK
     Route: 048
     Dates: start: 20090101
  5. SPASFON [Concomitant]
     Indication: PROSTATIC DISORDER
     Dosage: UNK
     Dates: start: 19960101
  6. HAVLANE [Suspect]
     Dosage: 1 MG, 1X/DAY
     Dates: start: 20090101
  7. TEMGESIC ^ESSEX PHARMA^ [Suspect]
     Dosage: UNK DF, UNK
     Route: 042
  8. EFFEXOR [Suspect]
     Indication: DEPRESSION
     Dosage: 37.5 MG, 1X/DAY
     Route: 048
     Dates: start: 19960101

REACTIONS (16)
  - ANURIA [None]
  - CONDITION AGGRAVATED [None]
  - WEIGHT DECREASED [None]
  - ABDOMINAL DISTENSION [None]
  - INSOMNIA [None]
  - DIARRHOEA [None]
  - DYSPEPSIA [None]
  - FAECALOMA [None]
  - OPEN ANGLE GLAUCOMA [None]
  - RENAL FAILURE [None]
  - DYSURIA [None]
  - DEPRESSION [None]
  - SUBILEUS [None]
  - BURN OESOPHAGEAL [None]
  - PROSTATIC DISORDER [None]
  - POLLAKIURIA [None]
